FAERS Safety Report 5190967-9 (Version None)
Quarter: 2006Q4

REPORT INFORMATION
  Report Type: 
  Country: None (occurrence: None)
  Receive Date: 20061222
  Receipt Date: 20061214
  Transmission Date: 20070319
  Serious: Yes (Hospitalization)
  Sender: FDA-Public Use
  Company Number: NO-ABBOTT-06P-122-0353484-00

PATIENT
  Sex: Male

DRUGS (2)
  1. HUMIRA [Suspect]
     Indication: RHEUMATOID ARTHRITIS
     Route: 058
     Dates: start: 20060626, end: 20061017
  2. PREDNISOLONE [Concomitant]
     Indication: ARTHRITIS
     Dosage: 2, 5-10 MG
     Route: 048

REACTIONS (4)
  - DRUG INEFFECTIVE [None]
  - HEPATIC ENZYME INCREASED [None]
  - MYALGIA [None]
  - PYREXIA [None]
